FAERS Safety Report 25561241 (Version 1)
Quarter: 2025Q3

REPORT INFORMATION
  Report Type: Spontaneous
  Country: US (occurrence: US)
  Receive Date: 20250716
  Receipt Date: 20250716
  Transmission Date: 20251020
  Serious: Yes (Hospitalization)
  Sender: BRISTOL-MYERS SQUIBB COMPANY
  Company Number: US-BRISTOL-MYERS SQUIBB COMPANY-2025-099248

PATIENT
  Age: 74 Year
  Sex: Male

DRUGS (1)
  1. POMALYST [Suspect]
     Active Substance: POMALIDOMIDE
     Indication: Type 2 diabetes mellitus
     Dosage: TAKE 1 CAPSULE BY MOUTH DAILY FOR 14 DAYS ON AND 7 DAYS OFF
     Route: 048

REACTIONS (1)
  - Hospitalisation [Recovering/Resolving]
